FAERS Safety Report 15836340 (Version 1)
Quarter: 2018Q4

REPORT INFORMATION
  Report Type: Spontaneous
  Country: US (occurrence: US)
  Receive Date: 20181221
  Receipt Date: 20181221
  Transmission Date: 20190205
  Serious: Yes (Other)
  Sender: FDA-Public Use
  Company Number: None

PATIENT
  Age: 49 Year
  Sex: Female

DRUGS (1)
  1. BUPRENORPHINE/NALOXONE 2MG/0.5MG [Suspect]
     Active Substance: BUPRENORPHINE HYDROCHLORIDE\NALOXONE HYDROCHLORIDE
     Indication: DRUG DEPENDENCE
     Dosage: 2MG/0.5MG 1/2 STRIP SL
     Route: 060
     Dates: start: 20170725, end: 20170825

REACTIONS (7)
  - Tachycardia [None]
  - Headache [None]
  - Drug ineffective [None]
  - Diarrhoea [None]
  - Tremor [None]
  - Nausea [None]
  - Product physical issue [None]

NARRATIVE: CASE EVENT DATE: 20170728
